FAERS Safety Report 4418146-0 (Version None)
Quarter: 2004Q3

REPORT INFORMATION
  Report Type: 
  Country: None (occurrence: None)
  Receive Date: 20040809
  Receipt Date: 20031002
  Transmission Date: 20050211
  Serious: No
  Sender: FDA-Public Use
  Company Number: US-GLAXOSMITHKLINE-A0428450A

PATIENT
  Age: 58 Year
  Sex: Male

DRUGS (4)
  1. PAXIL [Suspect]
     Dosage: 75MG PER DAY
     Route: 048
     Dates: start: 20020101
  2. KLONOPIN [Concomitant]
  3. RESTORIL [Concomitant]
  4. BENICAR [Concomitant]

REACTIONS (5)
  - DRUG INEFFECTIVE [None]
  - FATIGUE [None]
  - INSOMNIA [None]
  - LOSS OF LIBIDO [None]
  - SOMNOLENCE [None]
